FAERS Safety Report 7551251-9 (Version None)
Quarter: 2011Q2

REPORT INFORMATION
  Report Type: 
  Country: None (occurrence: None)
  Receive Date: 20110616
  Receipt Date: 20110602
  Transmission Date: 20111010
  Serious: Yes (Hospitalization, Other)
  Sender: FDA-Public Use
  Company Number: PHHY2011JP49091

PATIENT
  Sex: Female
  Weight: 57 kg

DRUGS (11)
  1. ATELEC [Concomitant]
     Dosage: 10 MG, UNK
     Route: 048
     Dates: start: 20081021
  2. ATELEC [Concomitant]
     Dosage: 10 MG, UNK
     Route: 048
  3. ATELEC [Concomitant]
     Dosage: 10 MG, UNK
     Route: 048
  4. TRICHLORMETHIAZIDE [Concomitant]
     Dosage: 5 MG, UNK
     Route: 048
     Dates: start: 20100405, end: 20100906
  5. KENTAN [Concomitant]
     Dosage: 120 MG, UNK
     Route: 048
     Dates: start: 20100826, end: 20101006
  6. ATELEC [Concomitant]
     Dosage: 20 MG, UNK
     Route: 048
  7. DIOVAN [Suspect]
     Dosage: 40 MG, QD
     Route: 048
     Dates: start: 20090625, end: 20100224
  8. DIOVAN [Suspect]
     Dosage: 40 MG, QD
     Route: 048
     Dates: start: 20090326, end: 20090518
  9. DIOVAN [Suspect]
     Dosage: 80 MG, QD
     Route: 048
     Dates: start: 20100225
  10. CINALONG [Concomitant]
     Dosage: 5 MG, UNK
     Route: 048
     Dates: start: 20090728, end: 20091130
  11. ALUSA [Concomitant]
     Dosage: 300 MG, UNK
     Route: 048
     Dates: start: 20100826, end: 20101006

REACTIONS (4)
  - OSTEOARTHRITIS [None]
  - GOUT [None]
  - BLOOD PRESSURE DECREASED [None]
  - BLOOD URIC ACID INCREASED [None]
